FAERS Safety Report 11114788 (Version 2)
Quarter: 2015Q4

REPORT INFORMATION
  Report Type: Spontaneous
  Country: US (occurrence: US)
  Receive Date: 20150515
  Receipt Date: 20151229
  Transmission Date: 20160304
  Serious: Yes (Other)
  Sender: FDA-Public Use
  Company Number: US-ELI_LILLY_AND_COMPANY-US201505003420

PATIENT
  Sex: Female

DRUGS (2)
  1. CYMBALTA [Suspect]
     Active Substance: DULOXETINE HYDROCHLORIDE
     Indication: DEPRESSION
     Dosage: 1 DF, UNKNOWN
     Dates: end: 201405
  2. CYMBALTA [Suspect]
     Active Substance: DULOXETINE HYDROCHLORIDE
     Indication: ANXIETY

REACTIONS (27)
  - Decreased interest [Unknown]
  - Depressed mood [Unknown]
  - Disturbance in attention [Unknown]
  - Sleep disorder [Unknown]
  - Dizziness [Unknown]
  - Confusional state [Unknown]
  - Mental disorder [Unknown]
  - Quality of life decreased [Unknown]
  - Drug withdrawal syndrome [Unknown]
  - Anxiety [Unknown]
  - Mood swings [Unknown]
  - Agitation [Unknown]
  - Tremor [Unknown]
  - Irritability [Unknown]
  - Insomnia [Unknown]
  - Injury [Unknown]
  - Pain [Unknown]
  - Emotional distress [Unknown]
  - Hallucination [Unknown]
  - Nightmare [Unknown]
  - Vertigo [Unknown]
  - Nausea [Unknown]
  - Emotional disorder [Unknown]
  - Influenza like illness [Unknown]
  - Memory impairment [Unknown]
  - Paraesthesia [Unknown]
  - Condition aggravated [Unknown]
